FAERS Safety Report 7941913-3 (Version None)
Quarter: 2011Q4

REPORT INFORMATION
  Report Type: 
  Country: None (occurrence: None)
  Receive Date: 20111128
  Receipt Date: 20111117
  Transmission Date: 20120403
  Serious: Yes (Other)
  Sender: FDA-Public Use
  Company Number: DE-B.I. PHARMACEUTICALS,INC./RIDGEFIELD-2011-DE-06442DE

PATIENT
  Sex: Male

DRUGS (2)
  1. PRADAXA [Suspect]
     Indication: ATRIAL FIBRILLATION
     Dosage: 2 ANZ
  2. PRADAXA [Suspect]
     Indication: ISCHAEMIC STROKE
     Dosage: 2 ANZ

REACTIONS (2)
  - CONVULSION [None]
  - CEREBRAL HAEMORRHAGE [None]
